FAERS Safety Report 5411146-3 (Version None)
Quarter: 2007Q3

REPORT INFORMATION
  Report Type: 
  Country: None (occurrence: None)
  Receive Date: 20070808
  Receipt Date: 20070723
  Transmission Date: 20080115
  Serious: Yes (Other)
  Sender: FDA-Public Use
  Company Number: 2007001297

PATIENT
  Age: 79 Year
  Sex: Male

DRUGS (1)
  1. MACUGEN [Suspect]
     Dosage: INTRA-VITREAL

REACTIONS (1)
  - APHASIA [None]
